FAERS Safety Report 16730015 (Version 1)
Quarter: 2019Q3

REPORT INFORMATION
  Report Type: Spontaneous
  Country: FR (occurrence: FR)
  Receive Date: 20190822
  Receipt Date: 20190822
  Transmission Date: 20191005
  Serious: Yes (Hospitalization)
  Sender: FDA-Public Use
  Company Number: FR-TEVA-2019-FR-1094334

PATIENT
  Age: 69 Year
  Sex: Female
  Weight: 81 kg

DRUGS (14)
  1. CETIRIZINE (DICHLORHYDRATE DE) [Concomitant]
     Active Substance: CETIRIZINE HYDROCHLORIDE
  2. MONICOR L.P. 20 MG, GELULE A LIBERATION PROLONGEE [Concomitant]
  3. FLECAINIDE (ACETATE DE) [Concomitant]
     Active Substance: FLECAINIDE
  4. DEXERYL [Concomitant]
  5. BEPANTHEN [Concomitant]
  6. PLAVIX [Suspect]
     Active Substance: CLOPIDOGREL BISULFATE
     Indication: THROMBOSIS PROPHYLAXIS
     Dosage: 75 MG
     Route: 048
     Dates: end: 201605
  7. GLUCOPHAGE [Suspect]
     Active Substance: METFORMIN HYDROCHLORIDE
     Indication: TYPE 2 DIABETES MELLITUS
     Dosage: 1 G
     Route: 048
     Dates: end: 201605
  8. NERISONE [Concomitant]
     Active Substance: DIFLUCORTOLONE VALERATE
  9. SPIRONOLACTONE. [Suspect]
     Active Substance: SPIRONOLACTONE
     Indication: PULMONARY ARTERIAL HYPERTENSION
     Dosage: 25 MG
     Route: 048
     Dates: end: 201605
  10. ATARAX [Concomitant]
     Active Substance: HYDROXYZINE HYDROCHLORIDE
  11. DAIVOBET [Concomitant]
     Active Substance: BETAMETHASONE DIPROPIONATE\CALCIPOTRIENE
  12. PARACETAMOL [Concomitant]
     Active Substance: ACETAMINOPHEN
  13. TAHOR [Suspect]
     Active Substance: ATORVASTATIN CALCIUM
     Indication: DYSLIPIDAEMIA
     Dosage: 40 MG
     Route: 048
     Dates: end: 201605
  14. EUCREAS 50 MG/1000 MG, COMPRIME PELLICULE [Suspect]
     Active Substance: METFORMIN HYDROCHLORIDE\VILDAGLIPTIN
     Indication: TYPE 2 DIABETES MELLITUS
     Dosage: 2 DF
     Route: 048
     Dates: end: 201605

REACTIONS (2)
  - Pruritus generalised [Recovered/Resolved]
  - Eosinophilia [Recovered/Resolved]

NARRATIVE: CASE EVENT DATE: 201604
